FAERS Safety Report 9985537 (Version 2)
Quarter: 2014Q3

REPORT INFORMATION
  Report Type: Spontaneous
  Country: US (occurrence: US)
  Receive Date: 20140307
  Receipt Date: 20140702
  Transmission Date: 20150326
  Serious: Yes (Hospitalization)
  Sender: FDA-Public Use
  Company Number: US-BAYER-2014-035491

PATIENT
  Age: 28 Year
  Sex: Female
  Weight: 63.49 kg

DRUGS (12)
  1. MAGNESIUM SULFATE [Concomitant]
     Active Substance: MAGNESIUM SULFATE
     Dosage: 2 G, UNK
     Route: 042
  2. YAZ [Suspect]
     Active Substance: DROSPIRENONE\ETHINYL ESTRADIOL
     Indication: CONTRACEPTION
     Dosage: UNK
     Dates: start: 2002, end: 2012
  3. FAMOTIDINE. [Concomitant]
     Active Substance: FAMOTIDINE
     Dosage: 20 MG, 1 TAB
  4. AMIODARONE [Concomitant]
     Active Substance: AMIODARONE
     Dosage: 150 MG, UNK
     Route: 042
  5. PROPOFOL. [Concomitant]
     Active Substance: PROPOFOL
     Dosage: 120 MG, UNK
     Route: 042
  6. MORPHINE SULFATE. [Concomitant]
     Active Substance: MORPHINE SULFATE
     Dosage: 2 MG /1 ML
  7. ADENOSINE. [Concomitant]
     Active Substance: ADENOSINE
     Dosage: 18 MG, UNK
     Route: 042
  8. NORMAL SALINE [Concomitant]
     Active Substance: SODIUM CHLORIDE
     Dosage: 1000
     Route: 042
  9. ADENOSINE. [Concomitant]
     Active Substance: ADENOSINE
     Dosage: 12 MG, UNK
  10. HYDROCODONE BIT/APAP [Concomitant]
     Active Substance: ACETAMINOPHEN\HYDROCODONE BITARTRATE
     Indication: PAIN
     Dosage: 5/500 1 EVERY 6 HORS AS NEEDED
     Route: 048
  11. IBUPROFEN. [Concomitant]
     Active Substance: IBUPROFEN
     Dosage: 600 MG, EVERY 8 HOURS FOR 5 DAYS
     Route: 048
  12. ACETAMINOPHEN. [Concomitant]
     Active Substance: ACETAMINOPHEN
     Dosage: 325 MG, BID EVERY 4 HORS AS NEEDEED
     Route: 048

REACTIONS (11)
  - Pain [Recovered/Resolved]
  - Emotional distress [None]
  - Deep vein thrombosis [Recovered/Resolved]
  - Abdominal pain [None]
  - Injury [Recovered/Resolved]
  - Pain [None]
  - Pelvic venous thrombosis [Recovered/Resolved]
  - Thrombosis [None]
  - Abasia [Recovered/Resolved]
  - General physical health deterioration [Recovered/Resolved]
  - Anxiety [None]

NARRATIVE: CASE EVENT DATE: 201208
